FAERS Safety Report 15283177 (Version 1)
Quarter: 2018Q3

REPORT INFORMATION
  Report Type: Spontaneous
  Country: US (occurrence: US)
  Receive Date: 20180816
  Receipt Date: 20180816
  Transmission Date: 20181010
  Serious: No
  Sender: FDA-Public Use
  Company Number: US-009507513-1808USA000199

PATIENT
  Age: 37 Year
  Sex: Female

DRUGS (12)
  1. GONAL?F [Concomitant]
     Active Substance: FOLLITROPIN
  2. ASPIRIN. [Concomitant]
     Active Substance: ASPIRIN
  3. AZITHROMYCIN ANHYDROUS. [Concomitant]
     Active Substance: AZITHROMYCIN ANHYDROUS
  4. CONCEPT OB [Concomitant]
     Active Substance: ASCORBIC ACID\BIOTIN\CALCIUM PANTOTHENATE\CUPRIC SULFATE\CYANOCOBALAMIN\FERROUS FUMARATE\FOLIC ACID\IRON\MAGNESIUM SULFATE\MANGANESE SULFATE\NIACIN\PYRIDOXINE HYDROCHLORIDE\RIBOFLAVIN\THIAMINE MONONITRATE\ZINC SULFATE
  5. METHYLPREDNISOLONE. [Concomitant]
     Active Substance: METHYLPREDNISOLONE
  6. MENOPUR [Concomitant]
     Active Substance: FOLLITROPIN\LUTEINIZING HORMONE
  7. PROGESTERONE. [Concomitant]
     Active Substance: PROGESTERONE
  8. MINIVELLE [Suspect]
     Active Substance: ESTRADIOL
     Dosage: 2?4 PATCHES APPLY TO SKIN
     Dates: start: 20180523
  9. ENDOMETRIN [Concomitant]
     Active Substance: PROGESTERONE
  10. ESTRADIOL. [Concomitant]
     Active Substance: ESTRADIOL
  11. LEUPROLIDE [Concomitant]
     Active Substance: LEUPROLIDE
     Dosage: UNK
  12. GANIRELIX ACETATE INJECTION [Suspect]
     Active Substance: GANIRELIX ACETATE
     Indication: INFERTILITY FEMALE
     Dosage: 250 MICROGRAM, QD
     Route: 058
     Dates: start: 20180421

REACTIONS (2)
  - Rash [Unknown]
  - Erythema [Unknown]

NARRATIVE: CASE EVENT DATE: 201807
